FAERS Safety Report 7136733-6 (Version None)
Quarter: 2010Q4

REPORT INFORMATION
  Report Type: 
  Country: None (occurrence: None)
  Receive Date: 20101118
  Receipt Date: 20101101
  Transmission Date: 20110411
  Serious: Yes (Other)
  Sender: FDA-Public Use
  Company Number: 2010P1002385

PATIENT
  Age: 15 Year
  Sex: Female

DRUGS (2)
  1. AMPHETAMINE SALTS (NO PREF. NAME) [Suspect]
     Indication: ATTENTION DEFICIT/HYPERACTIVITY DISORDER
  2. DEXAMETHASONE [Suspect]
     Indication: DRUG DISPENSING ERROR

REACTIONS (2)
  - CUSHING'S SYNDROME [None]
  - DRUG DISPENSING ERROR [None]
